FAERS Safety Report 5024995-0 (Version None)
Quarter: 2006Q2

REPORT INFORMATION
  Report Type: 
  Country: None (occurrence: None)
  Receive Date: 20060426
  Receipt Date: 20060105
  Transmission Date: 20061013
  Serious: Yes (Other)
  Sender: FDA-Public Use
  Company Number: 2006004724

PATIENT
  Age: 76 Year
  Sex: Male
  Weight: 59.8748 kg

DRUGS (3)
  1. LYRICA [Suspect]
     Indication: POST HERPETIC NEURALGIA
     Dosage: 600 MG (1 D)
     Dates: start: 20051101
  2. VICODIN [Concomitant]
  3. TRAMADOL HCL [Concomitant]

REACTIONS (4)
  - DIFFICULTY IN WALKING [None]
  - FEELING ABNORMAL [None]
  - MENTAL IMPAIRMENT [None]
  - URINARY INCONTINENCE [None]
